FAERS Safety Report 9382151 (Version 2)
Quarter: 2013Q3

REPORT INFORMATION
  Report Type: Spontaneous
  Country: US (occurrence: US)
  Receive Date: 20130703
  Receipt Date: 20130730
  Transmission Date: 20140515
  Serious: No
  Sender: FDA-Public Use
  Company Number: US-DYAX CORP.-2013DX000128

PATIENT
  Age: 17 Year
  Sex: Female
  Weight: 72.64 kg

DRUGS (7)
  1. KALBITOR [Suspect]
     Indication: HEREDITARY ANGIOEDEMA
     Route: 058
     Dates: start: 20130624, end: 20130624
  2. KALBITOR [Suspect]
     Route: 058
     Dates: start: 20130622, end: 20130622
  3. KALBITOR [Suspect]
     Route: 058
  4. TRAMADOL [Concomitant]
     Indication: PAIN
     Route: 048
     Dates: start: 201305
  5. TRAZODONE [Concomitant]
     Indication: SLEEP DISORDER
     Route: 048
     Dates: start: 201210
  6. PROPRANOLOL [Concomitant]
     Indication: ANXIETY
     Route: 048
     Dates: start: 201211
  7. CINRYZE [Concomitant]
     Indication: HEREDITARY ANGIOEDEMA
     Route: 042
     Dates: start: 201306

REACTIONS (6)
  - Abdominal pain [Unknown]
  - Chest discomfort [Unknown]
  - Chest pain [Recovered/Resolved]
  - Hereditary angioedema [Unknown]
  - Nausea [Unknown]
  - Vomiting [Recovered/Resolved]
